FAERS Safety Report 22316297 (Version 2)
Quarter: 2023Q2

REPORT INFORMATION
  Report Type: Spontaneous
  Country: GB (occurrence: GB)
  Receive Date: 20230513
  Receipt Date: 20230520
  Transmission Date: 20230721
  Serious: Yes (Hospitalization, Other)
  Sender: FDA-Public Use
  Company Number: GB-AUROBINDO-AUR-APL-2021-031601

PATIENT
  Age: 79 Year
  Sex: Female

DRUGS (2)
  1. ALENDRONIC ACID [Suspect]
     Active Substance: ALENDRONIC ACID
     Indication: Growth retardation
     Dosage: 70 MILLIGRAM, EVERY WEEK
     Route: 065
  2. DENOSUMAB [Suspect]
     Active Substance: DENOSUMAB
     Indication: Osteoporosis
     Dosage: 60 MILLIGRAM (6 MONTHS)
     Route: 065

REACTIONS (4)
  - Osteonecrosis of external auditory canal [Recovered/Resolved]
  - Conductive deafness [Recovered/Resolved]
  - Ear pain [Recovered/Resolved]
  - Otorrhoea [Recovered/Resolved]
